FAERS Safety Report 5283674-5 (Version None)
Quarter: 2007Q2

REPORT INFORMATION
  Report Type: 
  Country: None (occurrence: None)
  Receive Date: 20070402
  Receipt Date: 20070321
  Transmission Date: 20071010
  Serious: Yes (Other)
  Sender: FDA-Public Use
  Company Number: IT-ROCHE-476793

PATIENT
  Age: 51 Year
  Sex: Male

DRUGS (3)
  1. PEG-INTERFERON A-2A (RO 25-8310) [Suspect]
     Route: 058
     Dates: start: 20051103, end: 20061005
  2. RIBAVIRIN [Suspect]
     Dosage: ADMINISTERED QD.
     Route: 048
     Dates: start: 20051103, end: 20061005
  3. BLINDED THYMOSIN ALFA 1 [Suspect]
     Route: 058
     Dates: start: 20051103, end: 20061003

REACTIONS (1)
  - GASTROENTERITIS EOSINOPHILIC [None]
